FAERS Safety Report 8382904-0 (Version None)
Quarter: 2012Q2

REPORT INFORMATION
  Report Type: 
  Country: None (occurrence: None)
  Receive Date: 20120524
  Receipt Date: 20120514
  Transmission Date: 20120825
  Serious: Yes (Other)
  Sender: FDA-Public Use
  Company Number: IL-JNJFOC-20120512672

PATIENT
  Sex: Male

DRUGS (4)
  1. REMICADE [Suspect]
     Route: 042
  2. PHENERGAN [Concomitant]
     Indication: PREMEDICATION
     Route: 065
  3. REMICADE [Suspect]
     Indication: PSORIATIC ARTHROPATHY
     Dosage: SECOND INFUSION
     Route: 042
  4. REMICADE [Suspect]
     Dosage: FIRST INFUSION
     Route: 042

REACTIONS (1)
  - CHILLS [None]
